FAERS Safety Report 23590884 (Version 1)
Quarter: 2024Q1

REPORT INFORMATION
  Report Type: Spontaneous
  Country: DE (occurrence: DE)
  Receive Date: 20240304
  Receipt Date: 20240304
  Transmission Date: 20240410
  Serious: Yes (Other)
  Sender: FDA-Public Use
  Company Number: DE-002147023-NVSC2023DE046164

PATIENT
  Sex: Female
  Weight: 80 kg

DRUGS (2)
  1. FULVESTRANT [Suspect]
     Active Substance: FULVESTRANT
     Indication: Breast cancer metastatic
     Dosage: 500 MG, QD (LAST DOSE DATE WAS 07 OCT 2019)
     Route: 030
     Dates: start: 20190712, end: 20191007
  2. RIBOCICLIB [Suspect]
     Active Substance: RIBOCICLIB
     Indication: Breast cancer metastatic
     Dosage: 600 MG, Q3W (DAILY DOSE) (LAST RECEIVED DOSE ON 07 OCT 2019)
     Route: 048
     Dates: start: 20190712, end: 20191007

REACTIONS (3)
  - Pneumonia [Recovered/Resolved]
  - Coronavirus infection [Recovered/Resolved]
  - Influenza like illness [Recovered/Resolved]

NARRATIVE: CASE EVENT DATE: 20221124
